FAERS Safety Report 8833003 (Version 5)
Quarter: 2014Q2

REPORT INFORMATION
  Report Type: Spontaneous
  Country: US (occurrence: US)
  Receive Date: 20121010
  Receipt Date: 20140530
  Transmission Date: 20141212
  Serious: Yes (Other)
  Sender: FDA-Public Use
  Company Number: US-PFIZER INC-2012250685

PATIENT
  Age: 49 Year
  Sex: Female
  Weight: 93.42 kg

DRUGS (6)
  1. EFFEXOR XR [Suspect]
     Indication: MAJOR DEPRESSION
     Dosage: 150 MG, DAILY IN THE MORNING
     Route: 048
  2. EFFEXOR XR [Suspect]
     Indication: GENERALISED ANXIETY DISORDER
  3. LYRICA [Suspect]
     Indication: NEURALGIA
     Dosage: 75 MG, 2X/DAY
     Route: 048
     Dates: start: 201101
  4. LYRICA [Suspect]
     Indication: NEUROPATHY PERIPHERAL
     Dosage: 75 MG, 3X/DAY
     Route: 048
  5. METFORMIN [Concomitant]
     Indication: GLUCOSE TOLERANCE IMPAIRED
     Dosage: 500 MG, 2X/DAY
  6. LOZOL [Concomitant]
     Indication: HYPERTENSION
     Dosage: 1.25 MG, DAILY

REACTIONS (3)
  - Tendon sheath incision [Unknown]
  - Tooth infection [Unknown]
  - Pain [Unknown]
